FAERS Safety Report 10378944 (Version 1)
Quarter: 2014Q3

REPORT INFORMATION
  Report Type: Spontaneous
  Country: US (occurrence: None)
  Receive Date: 20140811
  Receipt Date: 20140811
  Transmission Date: 20150326
  Serious: Yes (Other)
  Sender: FDA-Public Use
  Company Number: None

PATIENT
  Age: 55 Year
  Sex: Male
  Weight: 78.47 kg

DRUGS (2)
  1. CLINDAMYCIN HCL [Suspect]
     Active Substance: CLINDAMYCIN HYDROCHLORIDE
     Indication: TOOTH EXTRACTION
     Dosage: 1 PILL FOUR TIMES DAILY --
     Dates: start: 20140604, end: 20140614
  2. CLINDAMYCIN HCL [Suspect]
     Active Substance: CLINDAMYCIN HYDROCHLORIDE
     Dosage: 1 PILL FOUR TIMES DAILY --
     Dates: start: 20140604, end: 20140614

REACTIONS (4)
  - Secretion discharge [None]
  - Diarrhoea [None]
  - Bowel movement irregularity [None]
  - Clostridium test positive [None]

NARRATIVE: CASE EVENT DATE: 20140629
